FAERS Safety Report 7519974-5 (Version None)
Quarter: 2011Q2

REPORT INFORMATION
  Report Type: 
  Country: None (occurrence: None)
  Receive Date: 20110602
  Receipt Date: 20110524
  Transmission Date: 20111010
  Serious: Yes (Hospitalization, Other)
  Sender: FDA-Public Use
  Company Number: JP-B.I. PHARMACEUTICALS,INC./RIDGEFIELD-2011-BP-10836NB

PATIENT
  Sex: Male
  Weight: 53.6 kg

DRUGS (9)
  1. PRADAXA [Suspect]
     Indication: PROPHYLAXIS
     Dosage: 300 MG
     Route: 048
     Dates: start: 20110402, end: 20110404
  2. RABEPRAZOLE SODIUM [Concomitant]
     Dosage: 10 MG
     Route: 048
     Dates: start: 20110329, end: 20110406
  3. PRADAXA [Suspect]
     Dosage: 150 MG
     Route: 048
     Dates: start: 20110405, end: 20110407
  4. PRADAXA [Suspect]
     Dosage: 220 MG
     Route: 048
     Dates: start: 20110408, end: 20110408
  5. SPIRIVA 2.5 MCG RESPIMAT 60 PUFFS [Concomitant]
     Dosage: 25 MCG
     Route: 048
     Dates: start: 20110313, end: 20110406
  6. HALTHROW [Concomitant]
     Dosage: 12 MG
     Route: 048
     Dates: start: 20110329, end: 20110406
  7. BROTIZOLAM [Concomitant]
     Dosage: 0.25 MG
     Route: 048
     Dates: start: 20110316, end: 20110406
  8. GRAMALIL [Concomitant]
     Dosage: 75 MG
     Route: 048
     Dates: start: 20110310, end: 20110406
  9. ISOSORBIDE DINITRATE [Concomitant]
     Indication: BLOOD PRESSURE DECREASED
     Dosage: 40 MG
     Route: 062
     Dates: start: 20110317, end: 20110406

REACTIONS (4)
  - RESPIRATORY FAILURE [None]
  - PNEUMONIA [None]
  - HYPOXIA [None]
  - HAEMATURIA [None]
